FAERS Safety Report 21789990 (Version 3)
Quarter: 2023Q4

REPORT INFORMATION
  Report Type: Report from Study
  Country: US (occurrence: US)
  Receive Date: 20221228
  Receipt Date: 20231023
  Transmission Date: 20240109
  Serious: Yes (Other)
  Sender: FDA-Public Use
  Company Number: US-ABBVIE-4251864

PATIENT
  Age: 41 Year
  Sex: Male

DRUGS (2)
  1. HUMIRA [Suspect]
     Active Substance: ADALIMUMAB
     Indication: Crohn^s disease
     Route: 058
     Dates: start: 20170104
  2. HUMIRA [Suspect]
     Active Substance: ADALIMUMAB
     Route: 058

REACTIONS (11)
  - Skin cancer [Unknown]
  - Amnesia [Unknown]
  - Fatigue [Unknown]
  - Device difficult to use [Unknown]
  - Drug ineffective [Unknown]
  - Drug level decreased [Unknown]
  - Oral bacterial infection [Unknown]
  - Dry skin [Unknown]
  - Skin fissures [Unknown]
  - Melanocytic naevus [Unknown]
  - Skin papilloma [Unknown]

NARRATIVE: CASE EVENT DATE: 20170101
